FAERS Safety Report 8777631 (Version 1)
Quarter: 2012Q4

REPORT INFORMATION
  Report Type: 
  Country: US (occurrence: US)
  Receive Date: 20120910
  Receipt Date: 20120910
  Transmission Date: 20130627
  Serious: Yes (Death, Other)
  Sender: FDA-Public Use
  Company Number: US-ACTELION-A-NJ2012-70848

PATIENT
  Age: 45 Year
  Sex: Female

DRUGS (2)
  1. VELETRI [Suspect]
     Indication: PULMONARY ARTERIAL HYPERTENSION
     Dosage: 11 ng/kg, per min
     Route: 041
     Dates: end: 20120828
  2. OXYGEN [Concomitant]

REACTIONS (2)
  - Death [Fatal]
  - Dyspnoea [Not Recovered/Not Resolved]
